FAERS Safety Report 13192565 (Version 1)
Quarter: 2017Q1

REPORT INFORMATION
  Report Type: Spontaneous
  Country: FR (occurrence: FR)
  Receive Date: 20170207
  Receipt Date: 20170207
  Transmission Date: 20170428
  Serious: Yes (Hospitalization)
  Sender: FDA-Public Use
  Company Number: FR-ROCHE-1887437

PATIENT
  Age: 45 Year
  Sex: Male

DRUGS (6)
  1. LEPTICUR [Suspect]
     Active Substance: TROPATEPINE HYDROCHLORIDE
     Indication: MAJOR DEPRESSION
     Route: 048
     Dates: start: 20161227, end: 20161227
  2. NORSET [Concomitant]
     Active Substance: MIRTAZAPINE
     Route: 048
  3. DOMPERIDONE [Concomitant]
     Active Substance: DOMPERIDONE
     Route: 048
  4. LAMALINE [Suspect]
     Active Substance: ACETAMINOPHEN\CAFFEINE\OPIUM
     Indication: MAJOR DEPRESSION
     Route: 065
  5. VALIUM [Suspect]
     Active Substance: DIAZEPAM
     Indication: MAJOR DEPRESSION
     Route: 048
     Dates: start: 20161227, end: 20161227
  6. TRANDATE [Suspect]
     Active Substance: LABETALOL HYDROCHLORIDE
     Indication: MAJOR DEPRESSION
     Route: 048
     Dates: start: 20161227, end: 20161227

REACTIONS (5)
  - Electrocardiogram QT prolonged [Recovered/Resolved]
  - Dysarthria [Recovered/Resolved]
  - Confusional state [Recovered/Resolved]
  - Circulatory collapse [Recovered/Resolved]
  - Hypokalaemia [Recovered/Resolved]

NARRATIVE: CASE EVENT DATE: 20161227
